FAERS Safety Report 18425511 (Version 1)
Quarter: 2020Q4

REPORT INFORMATION
  Report Type: Spontaneous
  Country: US (occurrence: US)
  Receive Date: 20201026
  Receipt Date: 20201026
  Transmission Date: 20210114
  Serious: No
  Sender: FDA-Public Use
  Company Number: US-JNJFOC-20201021498

PATIENT
  Sex: Male

DRUGS (1)
  1. MENS ROGAINE [Suspect]
     Active Substance: MINOXIDIL
     Indication: PRODUCT USED FOR UNKNOWN INDICATION
     Route: 065

REACTIONS (5)
  - Heart rate increased [Unknown]
  - Muscle spasms [Unknown]
  - Abdominal pain upper [Unknown]
  - Palpitations [Unknown]
  - Hypoacusis [Unknown]
